FAERS Safety Report 9463231 (Version 1)
Quarter: 2013Q3

REPORT INFORMATION
  Report Type: Report from Study
  Country: BR (occurrence: BR)
  Receive Date: 20130818
  Receipt Date: 20130818
  Transmission Date: 20140515
  Serious: Yes (Hospitalization)
  Sender: FDA-Public Use
  Company Number: BR-US-EMD SERONO, INC.-7229432

PATIENT
  Age: 30 Year
  Sex: Female

DRUGS (2)
  1. REBIF [Suspect]
     Indication: RELAPSING-REMITTING MULTIPLE SCLEROSIS
     Dates: start: 20130401
  2. CYMBALTA [Concomitant]
     Indication: PRODUCT USED FOR UNKNOWN INDICATION

REACTIONS (10)
  - Vomiting [Recovered/Resolved]
  - Paraesthesia [Unknown]
  - Headache [Not Recovered/Not Resolved]
  - Eating disorder [Unknown]
  - Asthenia [Recovered/Resolved]
  - Scoliosis [Unknown]
  - Lymphocyte count abnormal [Unknown]
  - White blood cell disorder [Unknown]
  - Blood potassium abnormal [Unknown]
  - Nausea [Not Recovered/Not Resolved]
